FAERS Safety Report 7169639-7 (Version None)
Quarter: 2010Q4

REPORT INFORMATION
  Report Type: 
  Country: None (occurrence: None)
  Receive Date: 20101217
  Receipt Date: 20101206
  Transmission Date: 20110411
  Serious: Yes (Other)
  Sender: FDA-Public Use
  Company Number: US-JNJFOC-20101203459

PATIENT
  Age: 3 Year
  Sex: Female
  Weight: 17.69 kg

DRUGS (2)
  1. CHILDREN'S TYLENOL PLUS MULTI-SYMPTOM COLD [Suspect]
     Indication: NASOPHARYNGITIS
     Dosage: ONE TEASPOON ONE TIME
     Route: 048
  2. CHILDREN'S VITAMINS [Concomitant]
     Indication: VITAMIN SUPPLEMENTATION
     Dosage: ONE PER DAY
     Route: 065

REACTIONS (4)
  - DYSPNOEA [None]
  - PRODUCT QUALITY ISSUE [None]
  - WHEEZING [None]
  - WRONG DRUG ADMINISTERED [None]
